FAERS Safety Report 14990245 (Version 1)
Quarter: 2018Q2

REPORT INFORMATION
  Report Type: Spontaneous
  Country: US (occurrence: US)
  Receive Date: 20180608
  Receipt Date: 20180608
  Transmission Date: 20180711
  Serious: No
  Sender: FDA-Public Use
  Company Number: US-ROCHE-2041988

PATIENT
  Sex: Female

DRUGS (15)
  1. DYMISTA [Concomitant]
     Active Substance: AZELASTINE HYDROCHLORIDE\FLUTICASONE PROPIONATE
  2. PROVENTIL [Concomitant]
     Active Substance: ALBUTEROL
  3. FEXOFENADINE [Concomitant]
     Active Substance: FEXOFENADINE\FEXOFENADINE HYDROCHLORIDE
  4. LISINOPRIL. [Concomitant]
     Active Substance: LISINOPRIL
  5. METHOTREXATE. [Concomitant]
     Active Substance: METHOTREXATE
  6. ALPRAZOLAM. [Concomitant]
     Active Substance: ALPRAZOLAM
  7. SINGULAIR [Concomitant]
     Active Substance: MONTELUKAST SODIUM
  8. VENTOLIN [Concomitant]
     Active Substance: ALBUTEROL SULFATE
  9. ACTEMRA [Suspect]
     Active Substance: TOCILIZUMAB
     Indication: ANKYLOSING SPONDYLITIS
     Route: 058
     Dates: start: 20161229
  10. VICODIN [Concomitant]
     Active Substance: ACETAMINOPHEN\HYDROCODONE BITARTRATE
  11. HYDROXYCHLOROQUINE [Concomitant]
     Active Substance: HYDROXYCHLOROQUINE
  12. FOLIC ACID. [Concomitant]
     Active Substance: FOLIC ACID
  13. CYCLOBENZAPRINE. [Concomitant]
     Active Substance: CYCLOBENZAPRINE
  14. CRESTOR [Concomitant]
     Active Substance: ROSUVASTATIN CALCIUM
  15. HYDROCHLOROTHIAZID [Concomitant]
     Active Substance: HYDROCHLOROTHIAZIDE

REACTIONS (3)
  - Intentional product use issue [Unknown]
  - Off label use [Unknown]
  - Injection site reaction [Unknown]
